FAERS Safety Report 5430905-4 (Version None)
Quarter: 2007Q3

REPORT INFORMATION
  Report Type: 
  Country: None (occurrence: None)
  Receive Date: 20070830
  Receipt Date: 20070126
  Transmission Date: 20080115
  Serious: No
  Sender: FDA-Public Use
  Company Number: A0635694A

PATIENT
  Age: 61 Year
  Sex: Female
  Weight: 79.5 kg

DRUGS (4)
  1. WELLBUTRIN XL [Suspect]
     Indication: DEPRESSION
     Dosage: 300MG PER DAY
     Route: 048
     Dates: start: 20061211
  2. CLIMARA [Concomitant]
     Dosage: .1MG UNKNOWN
  3. HYDROCHLOROTHIAZIDE [Concomitant]
     Dosage: 25MG PER DAY
  4. ZESTRIL [Concomitant]
     Dosage: 20MG PER DAY

REACTIONS (3)
  - EYE SWELLING [None]
  - RASH [None]
  - SWELLING FACE [None]
